FAERS Safety Report 15585753 (Version 2)
Quarter: 2019Q2

REPORT INFORMATION
  Report Type: Spontaneous
  Country: US (occurrence: US)
  Receive Date: 20181105
  Receipt Date: 20190607
  Transmission Date: 20190711
  Serious: No
  Sender: FDA-Public Use
  Company Number: US-PFIZER INC-2016365414

PATIENT
  Age: 66 Year
  Sex: Female

DRUGS (25)
  1. METRONIDAZOLE. [Concomitant]
     Active Substance: METRONIDAZOLE
     Dosage: UNK UNK, 1X/DAY (APPLY THE AFFECTED AREA)
     Route: 061
  2. NASACORT [Concomitant]
     Active Substance: TRIAMCINOLONE ACETONIDE
     Dosage: 55 UG, UNK (OTC USED AS DIRECTED)
     Route: 045
  3. LYRICA [Suspect]
     Active Substance: PREGABALIN
     Dosage: 75 MG,4 TIMES A DAY  (Q6H)
     Route: 048
  4. SAVELLA [Concomitant]
     Active Substance: MILNACIPRAN HYDROCHLORIDE
     Dosage: 100 MG, 2X/DAY
     Route: 048
  5. ZINC CHLORIDE [Concomitant]
     Active Substance: ZINC CHLORIDE
     Dosage: 50 MG, UNK
  6. VITAMIN C [Concomitant]
     Active Substance: ASCORBIC ACID
     Dosage: 500 MG, UNK
  7. COREG [Concomitant]
     Active Substance: CARVEDILOL
     Dosage: 6.25 MG, 2X/DAY
     Route: 048
  8. EVISTA [Concomitant]
     Active Substance: RALOXIFENE HYDROCHLORIDE
     Dosage: 60 MG, 1X/DAY
     Route: 048
  9. MIRALAX [Concomitant]
     Active Substance: POLYETHYLENE GLYCOL 3350
     Indication: CONSTIPATION
     Dosage: 17 G, AS NEEDED (IN GLASS WATER QD PRN)
  10. KETOCONAZOLE. [Concomitant]
     Active Substance: KETOCONAZOLE
     Dosage: UNK (APPLY QD X6WK, 1)
     Route: 061
  11. TERBINAFINE. [Concomitant]
     Active Substance: TERBINAFINE
     Dosage: UNK (APPLY THE AFFECTED AREA)
     Route: 061
  12. ACETAMINOPHEN AND CODEINE [Concomitant]
     Active Substance: ACETAMINOPHEN\CODEINE PHOSPHATE
     Indication: CONDITION AGGRAVATED
     Dosage: UNK UNK, AS NEEDED (TID PRN) [ACETAMINOPHEN 300 MG/CODEINE 30 MG]
     Route: 048
  13. CALCIUM 500+D [Concomitant]
     Active Substance: CALCIUM\VITAMIN D
     Dosage: 400 IU, UNK (CALCIUM 500 + D 500 MG (L,250MG)
  14. DOCUSATE SODIUM. [Concomitant]
     Active Substance: DOCUSATE SODIUM
     Dosage: 100 MG, UNK
  15. TYLENOL WITH CODEINE [Concomitant]
     Active Substance: ACETAMINOPHEN\CODEINE PHOSPHATE
     Indication: PAIN
     Dosage: UNK (1 PO Q8H PRN) [ACETAMINOPHEN 300 MG/CODEINE 30 MG]
     Route: 048
  16. LYSINE [Concomitant]
     Active Substance: LYSINE
     Dosage: 500 MG, 3X/DAY
  17. FLONASE [Concomitant]
     Active Substance: FLUTICASONE PROPIONATE
     Dosage: 50 UG, UNK (50 MEG/ACTUATION SPRAY/2 SEN QD)
  18. ROBITUSSIN PEAK COLD COUGH+CHEST CONGESTION DM [Concomitant]
     Dosage: UNK [GUAIFENESIN 10 MG/DEXTROMETHORPHAN 200 MG]/5 ML ORAL LIQUID
     Route: 048
  19. BENAZEPRIL [Concomitant]
     Active Substance: BENAZEPRIL HYDROCHLORIDE
     Dosage: 20 MG, 1X/DAY
     Route: 048
  20. ZOLPIDEM [Concomitant]
     Active Substance: ZOLPIDEM\ZOLPIDEM TARTRATE
     Dosage: 10 MG, 1X/DAY (QHS)
     Route: 048
  21. FISH OIL [Concomitant]
     Active Substance: FISH OIL
     Dosage: 600 MG, 1X/DAY
     Route: 048
  22. FEXOFENADINE [Concomitant]
     Active Substance: FEXOFENADINE\FEXOFENADINE HYDROCHLORIDE
     Dosage: 180 MG, 1X/DAY
     Route: 048
  23. AMLODIPINE BESILATE [Concomitant]
     Active Substance: AMLODIPINE BESYLATE
     Dosage: 5 MG, 1X/DAY
     Route: 048
  24. CYCLOBENZAPRINE. [Concomitant]
     Active Substance: CYCLOBENZAPRINE
     Dosage: 10 MG, 3X/DAY
     Route: 048
  25. VALIUM [Concomitant]
     Active Substance: DIAZEPAM
     Dosage: 5 MG, AS NEEDED (Q 6HR PRN)
     Route: 048

REACTIONS (3)
  - Pain [Unknown]
  - Off label use [Unknown]
  - Product use issue [Unknown]
